FAERS Safety Report 5415985-4 (Version None)
Quarter: 2007Q3

REPORT INFORMATION
  Report Type: 
  Country: None (occurrence: None)
  Receive Date: 20070815
  Receipt Date: 20070808
  Transmission Date: 20080115
  Serious: Yes (Other)
  Sender: FDA-Public Use
  Company Number: US-PFIZER INC-2007066156

PATIENT
  Sex: Male
  Weight: 83 kg

DRUGS (6)
  1. VIAGRA [Suspect]
     Indication: ERECTILE DYSFUNCTION
  2. FELODIPINE [Concomitant]
  3. ATENOLOL [Concomitant]
  4. LOVASTATIN [Concomitant]
     Indication: HYPERTENSION
  5. LEVITRA [Concomitant]
  6. CIALIS [Concomitant]

REACTIONS (6)
  - BIOPSY [None]
  - CYANOPSIA [None]
  - ERECTILE DYSFUNCTION [None]
  - NASAL CONGESTION [None]
  - PROSTATE CANCER [None]
  - PROSTATIC SPECIFIC ANTIGEN INCREASED [None]
